FAERS Safety Report 10571328 (Version 1)
Quarter: 2014Q4

REPORT INFORMATION
  Report Type: Spontaneous
  Country: US (occurrence: US)
  Receive Date: 20141107
  Receipt Date: 20141107
  Transmission Date: 20150529
  Serious: Yes (Other)
  Sender: FDA-Public Use
  Company Number: US-GLAXOSMITHKLINE-US2014GSK016956

PATIENT

DRUGS (1)
  1. AVANDIA [Suspect]
     Active Substance: ROSIGLITAZONE MALEATE
     Indication: DIABETES MELLITUS
     Dosage: UNK
     Dates: start: 200103, end: 200203

REACTIONS (4)
  - Atrial fibrillation [Unknown]
  - Peripheral vascular disorder [Unknown]
  - Coronary artery disease [Unknown]
  - Hypertrophic cardiomyopathy [Unknown]
